FAERS Safety Report 24867535 (Version 3)
Quarter: 2025Q2

REPORT INFORMATION
  Report Type: Spontaneous
  Country: FR (occurrence: FR)
  Receive Date: 20250121
  Receipt Date: 20250411
  Transmission Date: 20250717
  Serious: Yes (Hospitalization, Other)
  Sender: SANDOZ
  Company Number: FR-SANDOZ-SDZ2024FR104887

PATIENT
  Sex: Female

DRUGS (2)
  1. TYRUKO [Suspect]
     Active Substance: NATALIZUMAB-SZTN
     Indication: Product used for unknown indication
     Route: 065
     Dates: start: 20240729, end: 20241121
  2. TYSABRI [Suspect]
     Active Substance: NATALIZUMAB
     Indication: Product used for unknown indication
     Route: 042
     Dates: start: 2002

REACTIONS (5)
  - Renal failure [Unknown]
  - Lung disorder [Unknown]
  - Confusional state [Unknown]
  - Progressive multifocal leukoencephalopathy [Unknown]
  - Dyspnoea [Unknown]
